FAERS Safety Report 18535292 (Version 1)
Quarter: 2020Q4

REPORT INFORMATION
  Report Type: Other
  Country: US (occurrence: US)
  Receive Date: 20201123
  Receipt Date: 20201123
  Transmission Date: 20210114
  Serious: Yes (Other)
  Sender: FDA-Public Use
  Company Number: US-KNIGHT THERAPEUTICS (USA) INC.-2096192

PATIENT
  Age: 84 Year
  Sex: Male
  Weight: 94 kg

DRUGS (14)
  1. ATORVASTATIN [Concomitant]
     Active Substance: ATORVASTATIN
  2. OMEPRAZOLE. [Concomitant]
     Active Substance: OMEPRAZOLE
  3. IMPAVIDO [Suspect]
     Active Substance: MILTEFOSINE
  4. CETIRIZINE [Concomitant]
     Active Substance: CETIRIZINE HYDROCHLORIDE
  5. COLCHICINE. [Concomitant]
     Active Substance: COLCHICINE
  6. STEROIDS [Concomitant]
     Active Substance: UNSPECIFIED INGREDIENT
  7. PRIMIDONE. [Concomitant]
     Active Substance: PRIMIDONE
  8. AMLODIPINE [Concomitant]
     Active Substance: AMLODIPINE BESYLATE
  9. ASPIRIN. [Concomitant]
     Active Substance: ASPIRIN
  10. GABAPENTIN. [Concomitant]
     Active Substance: GABAPENTIN
  11. EZETIMIBE. [Concomitant]
     Active Substance: EZETIMIBE
  12. PREDNISONE. [Concomitant]
     Active Substance: PREDNISONE
  13. LAMOTRIGINE. [Concomitant]
     Active Substance: LAMOTRIGINE
  14. ESCITALOPRAM [Concomitant]
     Active Substance: ESCITALOPRAM OXALATE

REACTIONS (10)
  - Gout [Recovering/Resolving]
  - Lipase increased [Recovered/Resolved]
  - Off label use [Recovered/Resolved]
  - Alanine aminotransferase increased [Recovered/Resolved]
  - Joint swelling [Recovered/Resolved]
  - Therapy cessation [Recovered/Resolved]
  - Arthralgia [Recovered/Resolved]
  - Amylase increased [Recovered/Resolved]
  - Aspartate aminotransferase increased [Recovered/Resolved]
  - Drug effective for unapproved indication [Recovered/Resolved]
